FAERS Safety Report 20233530 (Version 1)
Quarter: 2021Q4

REPORT INFORMATION
  Report Type: Spontaneous
  Country: DE (occurrence: DE)
  Receive Date: 20211227
  Receipt Date: 20211227
  Transmission Date: 20220304
  Serious: Yes (Hospitalization)
  Sender: FDA-Public Use
  Company Number: DE-NOVARTISPH-NVSC2021DE285453

PATIENT
  Age: 81 Year
  Sex: Female

DRUGS (11)
  1. ESCITALOPRAM [Suspect]
     Active Substance: ESCITALOPRAM OXALATE
     Indication: Product used for unknown indication
     Dosage: UNK (10 MG, 0.5-0-0-0)
     Route: 048
  2. APIXABAN [Suspect]
     Active Substance: APIXABAN
     Indication: Product used for unknown indication
     Dosage: UNK (5 MG, 1-0-1-0)
     Route: 048
  3. SACUBITRIL\VALSARTAN [Suspect]
     Active Substance: SACUBITRIL\VALSARTAN
     Indication: Product used for unknown indication
     Dosage: 49|51 MG, 2-0-2-0
     Route: 048
  4. TORSEMIDE [Suspect]
     Active Substance: TORSEMIDE
     Indication: Product used for unknown indication
     Dosage: UNK (10 MG, 2-0-2-0)
     Route: 048
  5. LERCANIDIPINE RANBAXY [Concomitant]
     Indication: Product used for unknown indication
     Dosage: UNK (10 MG, 0.5-0-0.5-0)
     Route: 048
  6. VIGANTOLETTEN ^MERCK^ [Concomitant]
     Indication: Product used for unknown indication
     Dosage: UNK (1000 IE, 0-1-0-0)
     Route: 048
  7. TRELEGY ELLIPTA [Concomitant]
     Active Substance: FLUTICASONE FUROATE\UMECLIDINIUM BROMIDE\VILANTEROL TRIFENATATE
     Indication: Product used for unknown indication
     Dosage: UNK (1-0-0-0)
     Route: 048
  8. FERROUS GLYCINE SULFATE [Concomitant]
     Active Substance: FERROUS GLYCINE SULFATE
     Indication: Product used for unknown indication
     Dosage: UNK (100 MG, 1-0-0-0)
     Route: 048
  9. METOPROLOL [Concomitant]
     Active Substance: METOPROLOL
     Indication: Product used for unknown indication
     Dosage: UNK (95 MG, 1-0-1-0)
     Route: 048
  10. SIMVASTATIN [Concomitant]
     Active Substance: SIMVASTATIN
     Indication: Product used for unknown indication
     Dosage: UNK (20 MG, 0-0-1-0)
     Route: 048
  11. SPIRONOLACTONE [Concomitant]
     Active Substance: SPIRONOLACTONE
     Indication: Product used for unknown indication
     Dosage: UNK (25 MG, 1-0-0-0)
     Route: 048

REACTIONS (5)
  - Anaemia [Unknown]
  - Abdominal pain [Unknown]
  - Haematemesis [Unknown]
  - Abdominal pain upper [Unknown]
  - Product prescribing error [Unknown]
